FAERS Safety Report 10930818 (Version 1)
Quarter: 2015Q1

REPORT INFORMATION
  Report Type: Report from Study
  Country: CA (occurrence: CA)
  Receive Date: 20150319
  Receipt Date: 20150319
  Transmission Date: 20150721
  Serious: Yes (Other)
  Sender: FDA-Public Use
  Company Number: CA-ABBVIE-15K-028-1358580-00

PATIENT
  Sex: Female
  Weight: 59.02 kg

DRUGS (7)
  1. HUMIRA [Suspect]
     Active Substance: ADALIMUMAB
     Indication: RHEUMATOID ARTHRITIS
     Route: 058
     Dates: start: 20060511, end: 2013
  2. GABAPENTIN. [Concomitant]
     Active Substance: GABAPENTIN
     Indication: PAIN
     Route: 048
  3. HUMIRA [Suspect]
     Active Substance: ADALIMUMAB
     Route: 058
     Dates: start: 20141210
  4. FOSAVANCE [Concomitant]
     Active Substance: ALENDRONATE SODIUM\CHOLECALCIFEROL
     Indication: BONE DENSITY INCREASED
     Route: 048
  5. TYLENOL ARTHRITIS PAIN [Concomitant]
     Active Substance: ACETAMINOPHEN
     Indication: PAIN
     Route: 048
  6. METHOTREXATE [Concomitant]
     Active Substance: METHOTREXATE
     Indication: PAIN
     Route: 048
  7. FOLIC ACID. [Concomitant]
     Active Substance: FOLIC ACID
     Indication: VITAMIN SUPPLEMENTATION
     Route: 048

REACTIONS (10)
  - Spinal disorder [Not Recovered/Not Resolved]
  - Pain [Not Recovered/Not Resolved]
  - Nerve injury [Recovering/Resolving]
  - Peripheral swelling [Not Recovered/Not Resolved]
  - Open fracture [Recovering/Resolving]
  - Malaise [Not Recovered/Not Resolved]
  - Procedural complication [Recovering/Resolving]
  - Arthropathy [Not Recovered/Not Resolved]
  - Periprosthetic fracture [Recovering/Resolving]
  - Fall [Unknown]

NARRATIVE: CASE EVENT DATE: 2013
